FAERS Safety Report 14232066 (Version 1)
Quarter: 2017Q4

REPORT INFORMATION
  Report Type: Spontaneous
  Country: DE (occurrence: DE)
  Receive Date: 20171128
  Receipt Date: 20171128
  Transmission Date: 20180321
  Serious: Yes (Hospitalization)
  Sender: FDA-Public Use
  Company Number: DE-SA-2017SA231331

PATIENT
  Age: 47 Year
  Sex: Female

DRUGS (1)
  1. ALEMTUZUMAB [Suspect]
     Active Substance: ALEMTUZUMAB
     Indication: MULTIPLE SCLEROSIS
     Route: 041
     Dates: start: 201401, end: 201401

REACTIONS (10)
  - Listeriosis [Recovered/Resolved]
  - Meningism [Recovered/Resolved]
  - Photophobia [Recovered/Resolved]
  - C-reactive protein increased [Recovered/Resolved]
  - Pleocytosis [Recovered/Resolved]
  - Headache [Recovered/Resolved]
  - Musculoskeletal stiffness [Recovered/Resolved]
  - Pyrexia [Recovered/Resolved]
  - Blood lactic acid increased [Recovered/Resolved]
  - CSF protein increased [Recovered/Resolved]

NARRATIVE: CASE EVENT DATE: 2014
